FAERS Safety Report 18349246 (Version 1)
Quarter: 2020Q4

REPORT INFORMATION
  Report Type: Spontaneous
  Country: CN (occurrence: CN)
  Receive Date: 20201006
  Receipt Date: 20201006
  Transmission Date: 20210114
  Serious: Yes (Other)
  Sender: FDA-Public Use
  Company Number: CN-ASTRAZENECA-2020SF26408

PATIENT
  Age: 20089 Day
  Sex: Female
  Weight: 59 kg

DRUGS (3)
  1. COMPOUND IPRATROPIUM BROMIDE SOLUTION FOR INHALATION [Suspect]
     Active Substance: IPRATROPIUM BROMIDE
     Indication: ASTHMA
     Route: 055
     Dates: start: 20200915, end: 20200917
  2. BUDESONIDE SUSPENSION FOR INHALATION [Suspect]
     Active Substance: BUDESONIDE
     Indication: ASTHMA
     Route: 055
     Dates: start: 20200915, end: 20200917
  3. SALBUTAMOL SULFATE NEBULES INHALATION SOLUTION [Suspect]
     Active Substance: ALBUTEROL SULFATE
     Indication: ASTHMA
     Route: 055
     Dates: start: 20200917

REACTIONS (5)
  - Dizziness [Recovering/Resolving]
  - Agitation [Recovering/Resolving]
  - Hypoaesthesia [Recovering/Resolving]
  - Discomfort [Recovered/Resolved]
  - Nausea [Recovering/Resolving]

NARRATIVE: CASE EVENT DATE: 20200917
